FAERS Safety Report 9653345 (Version 4)
Quarter: 2014Q2

REPORT INFORMATION
  Report Type: Report from Study
  Country: CA (occurrence: CA)
  Receive Date: 20131029
  Receipt Date: 20140418
  Transmission Date: 20141212
  Serious: Yes (Other)
  Sender: FDA-Public Use
  Company Number: CA-ABBVIE-13P-028-1161348-00

PATIENT
  Age: 29 Year
  Sex: Female
  Weight: 85 kg

DRUGS (2)
  1. HUMIRA [Suspect]
     Indication: CROHN^S DISEASE
     Route: 058
     Dates: start: 20130807
  2. IRON [Concomitant]
     Indication: ANAEMIA

REACTIONS (7)
  - Haemoglobin decreased [Not Recovered/Not Resolved]
  - Hypoaesthesia [Unknown]
  - Dyspnoea [Unknown]
  - Respiratory rate increased [Unknown]
  - Fatigue [Unknown]
  - Anaemia [Unknown]
  - Blood iron decreased [Not Recovered/Not Resolved]
